FAERS Safety Report 25531863 (Version 2)
Quarter: 2025Q3

REPORT INFORMATION
  Report Type: Spontaneous
  Country: EU (occurrence: EU)
  Receive Date: 20250709
  Receipt Date: 20250714
  Transmission Date: 20251020
  Serious: Yes (Other)
  Sender: ADVANZ PHARMA
  Company Number: EU-UCBSA-2021028099

PATIENT

DRUGS (5)
  1. ZONISAMIDE [Suspect]
     Active Substance: ZONISAMIDE
     Indication: Epilepsy
  2. KEPPRA [Suspect]
     Active Substance: LEVETIRACETAM
     Indication: Epilepsy
  3. LAMOTRIGINE [Suspect]
     Active Substance: LAMOTRIGINE
     Indication: Epilepsy
  4. PERAMPANEL [Suspect]
     Active Substance: PERAMPANEL
     Indication: Epilepsy
  5. CHOLESTEROL [Concomitant]
     Active Substance: CHOLESTEROL
     Indication: Blood cholesterol decreased

REACTIONS (5)
  - Respiratory tract infection [Unknown]
  - Deafness neurosensory [Unknown]
  - Ear infection [Unknown]
  - Obesity [Unknown]
  - Multiple-drug resistance [Unknown]
